FAERS Safety Report 23024187 (Version 1)
Quarter: 2023Q4

REPORT INFORMATION
  Report Type: Other
  Country: CN (occurrence: None)
  Receive Date: 20231004
  Receipt Date: 20231004
  Transmission Date: 20240110
  Serious: Yes (Hospitalization, Other)
  Sender: FDA-Public Use
  Company Number: CN-Saptalis Pharmaceuticals,LLC-000387

PATIENT
  Age: 16 Year
  Sex: Male

DRUGS (2)
  1. METFORMIN [Suspect]
     Active Substance: METFORMIN HYDROCHLORIDE
     Indication: Monogenic diabetes
  2. METFORMIN [Suspect]
     Active Substance: METFORMIN HYDROCHLORIDE
     Indication: Monogenic diabetes

REACTIONS (3)
  - Treatment noncompliance [Unknown]
  - Diabetic retinopathy [Unknown]
  - Neuropathy peripheral [Unknown]
